FAERS Safety Report 8099600-X (Version None)
Quarter: 2012Q1

REPORT INFORMATION
  Report Type: 
  Country: None (occurrence: None)
  Receive Date: 20120131
  Receipt Date: 20120127
  Transmission Date: 20120608
  Serious: Yes (Other)
  Sender: FDA-Public Use
  Company Number: JP-PFIZER INC-2012012209

PATIENT
  Age: 32 Year
  Sex: Female

DRUGS (2)
  1. ZOLOFT [Suspect]
     Dosage: 50 MG/DAY
     Route: 048
     Dates: start: 20120106, end: 20120116
  2. LEVOTOMIN [Concomitant]
     Dosage: UNK
     Route: 048
     Dates: start: 20120101

REACTIONS (2)
  - DRUG ERUPTION [None]
  - BLISTER [None]
